FAERS Safety Report 15260444 (Version 1)
Quarter: 2018Q3

REPORT INFORMATION
  Report Type: Spontaneous
  Country: US (occurrence: US)
  Receive Date: 20180809
  Receipt Date: 20180809
  Transmission Date: 20181010
  Serious: No
  Sender: FDA-Public Use
  Company Number: US-CELGENEUS-USA-20180802149

PATIENT
  Sex: Female

DRUGS (2)
  1. THALOMID [Suspect]
     Active Substance: THALIDOMIDE
     Indication: NEURODERMATITIS
     Dosage: 50 MILLIGRAM
     Route: 048
     Dates: start: 201806
  2. THALOMID [Suspect]
     Active Substance: THALIDOMIDE
     Indication: OFF LABEL USE

REACTIONS (2)
  - Wheezing [Unknown]
  - Rash [Unknown]

NARRATIVE: CASE EVENT DATE: 2018
